FAERS Safety Report 10952309 (Version 1)
Quarter: 2015Q1

REPORT INFORMATION
  Report Type: Spontaneous
  Country: US (occurrence: None)
  Receive Date: 20150323
  Receipt Date: 20150323
  Transmission Date: 20150721
  Serious: No
  Sender: FDA-Public Use
  Company Number: VIT-2015-00141

PATIENT
  Age: 50 Year
  Sex: Male
  Weight: 85.5 kg

DRUGS (8)
  1. ACETYLSALICYLIC ACID [Concomitant]
     Active Substance: ASPIRIN
  2. HUMOLOG INSULIN (INSULIN LISPRO) [Concomitant]
  3. LYRICA [Concomitant]
     Active Substance: PREGABALIN
  4. PROCARDIA XL [Concomitant]
     Active Substance: NIFEDIPINE
  5. VELPHORO [Suspect]
     Active Substance: FERRIC OXYHYDROXIDE
     Indication: HYPERPHOSPHATAEMIA
     Route: 048
     Dates: start: 201411
  6. MORPHINE SULFATE. [Concomitant]
     Active Substance: MORPHINE SULFATE
  7. OXYCODONE [Concomitant]
     Active Substance: OXYCODONE
  8. LANTUS [Concomitant]
     Active Substance: INSULIN GLARGINE

REACTIONS (1)
  - Face oedema [None]

NARRATIVE: CASE EVENT DATE: 201411
